FAERS Safety Report 8560721-6 (Version None)
Quarter: 2012Q3

REPORT INFORMATION
  Report Type: 
  Country: None (occurrence: None)
  Receive Date: 20120802
  Receipt Date: 20120731
  Transmission Date: 20120928
  Serious: Yes (Other)
  Sender: FDA-Public Use
  Company Number: PHHY2012BR042070

PATIENT
  Age: 73 Year
  Sex: Male

DRUGS (8)
  1. METFORMIN HCL [Concomitant]
     Indication: DIABETES MELLITUS
     Dosage: 2 DF (1 DF BEFORE BREAKFAST AND , A DAY
     Route: 048
  2. INSULIN [Concomitant]
     Indication: DIABETES MELLITUS
     Dosage: 20 CC ON THE MORNING AND 10 CC AT NIGHT
     Route: 058
  3. DIOCOMB SI [Suspect]
     Indication: CARDIAC DISORDER
     Dosage: 2 DF (80 MG VALSARTAN AND 20 MG SIMVASTATIN), A DAY
     Dates: start: 20041117
  4. VASTAREL [Concomitant]
     Indication: CARDIAC DISORDER
     Dosage: 2 DF, DAILY
     Route: 048
  5. BRILINTA [Concomitant]
     Indication: CARDIAC DISORDER
     Dosage: 2 DF, DAILY
     Route: 048
  6. DIOVAN HCT [Suspect]
     Indication: HYPERTENSION
     Dosage: 1 DF (320 MG VALSAR AND 12.5 MG HYDRO), DAILY AFTER BREAKFAST
  7. METOPROLOL SUCCINATE [Concomitant]
     Indication: BLOOD PRESSURE
     Dosage: 1 DF, DAILY
     Route: 048
  8. SIMVASTATIN [Concomitant]
     Indication: BLOOD CHOLESTEROL ABNORMAL
     Dosage: 1 DF, DAILY
     Route: 048

REACTIONS (1)
  - ATRIOVENTRICULAR BLOCK [None]
